FAERS Safety Report 8803503 (Version 2)
Quarter: 2013Q2

REPORT INFORMATION
  Report Type: Spontaneous
  Country: BR (occurrence: BR)
  Receive Date: 20120924
  Receipt Date: 20130415
  Transmission Date: 20140414
  Serious: Yes (Other)
  Sender: FDA-Public Use
  Company Number: PHHY2012BR081217

PATIENT
  Age: 52 Year
  Sex: Male
  Weight: 60 kg

DRUGS (6)
  1. FORASEQ [Suspect]
     Indication: BRONCHITIS
     Dosage: 1 DF, Q12H
     Dates: end: 201209
  2. FORASEQ [Suspect]
     Dosage: 1 DF, UNK
     Dates: start: 201210
  3. RIVOTRIL [Concomitant]
     Indication: DEPRESSION
     Dosage: 2 MG, EVERY 12 HOURS
     Route: 048
  4. DEPOT F.I.T. [Concomitant]
     Indication: HYPERSENSITIVITY
     Dosage: 5 ML, EVERY 21 DAYS
     Route: 058
  5. LOSARTAN [Concomitant]
     Indication: BLOOD PRESSURE INADEQUATELY CONTROLLED
     Dosage: 2 DF, 1 TABLET IN THE MORNING/ 1 TABLET AT NIGHT
     Route: 048
  6. ATENOLOL [Concomitant]
     Indication: BLOOD PRESSURE INADEQUATELY CONTROLLED
     Dosage: 2 DF, 1 TABLET IN THE MORNING/ 1 TABLET IN THE NIGHT
     Route: 048

REACTIONS (2)
  - Intestinal mass [Recovering/Resolving]
  - Pain [Recovering/Resolving]
